FAERS Safety Report 9555385 (Version 1)
Quarter: 2013Q3

REPORT INFORMATION
  Report Type: Report from Study
  Country: CA (occurrence: CA)
  Receive Date: 20130926
  Receipt Date: 20130926
  Transmission Date: 20140515
  Serious: Yes (Other)
  Sender: FDA-Public Use
  Company Number: CA-JNJFOC-20130912418

PATIENT
  Age: 66 Year
  Sex: Female
  Weight: 42 kg

DRUGS (8)
  1. REMICADE [Suspect]
     Indication: CROHN^S DISEASE
     Route: 042
     Dates: start: 200801
  2. SYNTHROID [Concomitant]
     Route: 065
  3. VITAMIN B12 [Concomitant]
     Route: 065
  4. CARBOCAL NOS [Concomitant]
     Route: 065
  5. ACTEROL [Concomitant]
     Route: 065
  6. EURECOR [Concomitant]
     Dosage: 1/12
     Route: 065
  7. EURECOR [Concomitant]
     Dosage: 1/12
     Route: 065
  8. EURECOR [Concomitant]
     Dosage: 1/12
     Route: 065

REACTIONS (1)
  - Anal fissure [Unknown]
